FAERS Safety Report 9793275 (Version 2)
Quarter: 2014Q1

REPORT INFORMATION
  Report Type: Spontaneous
  Country: FR (occurrence: None)
  Receive Date: 20131230
  Receipt Date: 20140116
  Transmission Date: 20141002
  Serious: Yes (Hospitalization, Other)
  Sender: FDA-Public Use
  Company Number: HRA-MET20130203

PATIENT
  Age: 72 Year
  Sex: Male

DRUGS (3)
  1. METOPIRONE [Suspect]
     Indication: DIAGNOSTIC PROCEDURE
     Dosage: 2000 GM (250 MG, 30 MG/KG X1X1)?
     Dates: start: 20131211, end: 20131211
  2. METOPIRONE [Suspect]
     Indication: HYPOTHALAMO-PITUITARY DISORDER
     Dosage: 2000 GM (250 MG, 30 MG/KG X1X1)?
     Dates: start: 20131211, end: 20131211
  3. HYDROCORTISONE [Concomitant]

REACTIONS (6)
  - Malaise [None]
  - Tremor [None]
  - Confusional state [None]
  - Vertigo [None]
  - Adrenal insufficiency [None]
  - Hyperhidrosis [None]
